FAERS Safety Report 6663505-9 (Version None)
Quarter: 2010Q2

REPORT INFORMATION
  Report Type: 
  Country: None (occurrence: None)
  Receive Date: 20100401
  Receipt Date: 20100322
  Transmission Date: 20101027
  Serious: Yes (Other)
  Sender: FDA-Public Use
  Company Number: CH-PFIZER INC-2010030960

PATIENT
  Age: 64 Year
  Sex: Female
  Weight: 64.853 kg

DRUGS (4)
  1. XANAX [Suspect]
     Indication: DEPRESSION
     Dosage: 1.5MG MORNING, 1MG NOON AND 1MG EVENING
     Route: 048
     Dates: start: 20091110
  2. XANAX [Suspect]
     Indication: RESTLESSNESS
  3. TRAZODONE HCL [Concomitant]
     Dosage: 200 MG, 1X/DAY
     Route: 048
  4. VENLAFAXINE [Concomitant]
     Dosage: 150 MG, 2X/DAY
     Route: 048

REACTIONS (4)
  - PRURITUS [None]
  - RASH [None]
  - SKIN BURNING SENSATION [None]
  - URINARY TRACT INFECTION [None]
